FAERS Safety Report 23967093 (Version 2)
Quarter: 2024Q3

REPORT INFORMATION
  Report Type: Report from Study
  Country: US (occurrence: None)
  Receive Date: 20240612
  Receipt Date: 20240716
  Transmission Date: 20241016
  Serious: Yes (Other)
  Sender: ASTRAZENECA
  Company Number: 2024A131456

PATIENT
  Sex: Female

DRUGS (26)
  1. LYNPARZA [Suspect]
     Active Substance: OLAPARIB
     Indication: Ovarian cancer
     Route: 048
     Dates: start: 20200902
  2. XARELTO [Concomitant]
     Active Substance: RIVAROXABAN
  3. POTASSIUM [Concomitant]
     Active Substance: POTASSIUM
  4. LASIX [Concomitant]
     Active Substance: FUROSEMIDE
  5. RESTASIS [Concomitant]
     Active Substance: CYCLOSPORINE
  6. VITAMIN B COMPLEX [Concomitant]
     Active Substance: CYANOCOBALAMIN\DEXPANTHENOL\NIACINAMIDE\PYRIDOXINE HYDROCHLORIDE\RIBOFLAVIN 5^-PHOSPHATE SODIUM\THIA
  7. VITAMIN E [Concomitant]
     Active Substance: .ALPHA.-TOCOPHEROL
  8. PROBIOTICS NOS [Concomitant]
     Active Substance: PROBIOTICS NOS
  9. ACIDOPHILUS [Concomitant]
     Active Substance: LACTOBACILLUS ACIDOPHILUS
  10. BIOTIN [Concomitant]
     Active Substance: BIOTIN
  11. KERATIN [Concomitant]
     Active Substance: KERATIN
  12. VITAMIN C [Concomitant]
     Active Substance: ASCORBIC ACID
  13. BERBERINE [Concomitant]
     Active Substance: BERBERINE
  14. GINKGO [Concomitant]
     Active Substance: GINKGO
  15. HERBALS\TURMERIC [Concomitant]
     Active Substance: HERBALS\TURMERIC
  16. CANNABIDIOL\HERBALS [Concomitant]
     Active Substance: CANNABIDIOL\HERBALS
  17. ZYRTEC [Concomitant]
     Active Substance: CETIRIZINE HYDROCHLORIDE
  18. SYNTHROID [Concomitant]
     Active Substance: LEVOTHYROXINE SODIUM
  19. SELENIUM [Concomitant]
     Active Substance: SELENIUM
  20. COLLAGEN [Concomitant]
     Active Substance: COLLAGEN
  21. ACETYLCARNITINE [Concomitant]
     Active Substance: ACETYLCARNITINE
  22. FISH OIL [Concomitant]
     Active Substance: FISH OIL
  23. HYALURONIC ACID SODIUM [Concomitant]
  24. ALPHA LIPOIC ACID [Concomitant]
     Active Substance: .ALPHA.-LIPOIC ACID
  25. HERBALS\SPIRULINA [Concomitant]
     Active Substance: HERBALS\SPIRULINA
  26. VITAMIN D3 [Concomitant]
     Active Substance: CHOLECALCIFEROL

REACTIONS (1)
  - Brain injury [Not Recovered/Not Resolved]
